FAERS Safety Report 11266541 (Version 2)
Quarter: 2015Q3

REPORT INFORMATION
  Report Type: Report from Study
  Country: US (occurrence: US)
  Receive Date: 20150713
  Receipt Date: 20150720
  Transmission Date: 20151125
  Serious: Yes (Death, Hospitalization)
  Sender: FDA-Public Use
  Company Number: US-BAYER-2015-366550

PATIENT
  Age: 72 Year
  Sex: Male

DRUGS (2)
  1. NEXAVAR [Suspect]
     Active Substance: SORAFENIB
     Indication: THYROID CANCER
     Dosage: 400 MG, BID
     Route: 048
     Dates: start: 20150621, end: 20150625
  2. NEXAVAR [Suspect]
     Active Substance: SORAFENIB
     Indication: HEPATOCELLULAR CARCINOMA
     Dosage: 400 MG, BID
     Route: 048
     Dates: start: 2015, end: 201507

REACTIONS (11)
  - Post procedural swelling [None]
  - Vomiting [None]
  - Chills [Not Recovered/Not Resolved]
  - Nausea [None]
  - Decreased appetite [None]
  - Pyrexia [Not Recovered/Not Resolved]
  - Fatigue [None]
  - Death [Fatal]
  - Infection [None]
  - Disorientation [None]
  - Procedural site reaction [None]

NARRATIVE: CASE EVENT DATE: 201506
